FAERS Safety Report 6031229-7 (Version None)
Quarter: 2009Q1

REPORT INFORMATION
  Report Type: 
  Country: None (occurrence: None)
  Receive Date: 20090108
  Receipt Date: 20090105
  Transmission Date: 20090719
  Serious: Yes (Other)
  Sender: FDA-Public Use
  Company Number: US-BAYER-200838334NA

PATIENT
  Sex: Female

DRUGS (1)
  1. AVELOX [Suspect]
     Indication: DRUG USE FOR UNKNOWN INDICATION
     Dates: start: 20080822

REACTIONS (5)
  - ANAPHYLACTIC REACTION [None]
  - ERYTHEMA [None]
  - FEELING HOT [None]
  - RASH [None]
  - SWELLING FACE [None]
